FAERS Safety Report 8820798 (Version 2)
Quarter: 2012Q4

REPORT INFORMATION
  Report Type: 
  Country: NL (occurrence: NL)
  Receive Date: 20121002
  Receipt Date: 20121130
  Transmission Date: 20130627
  Serious: Yes (Hospitalization, Other)
  Sender: FDA-Public Use
  Company Number: NL-TEVA-360068ISR

PATIENT
  Sex: Male
  Weight: 115 kg

DRUGS (3)
  1. METFORMINE [Suspect]
     Indication: TYPE 2 DIABETES MELLITUS
     Dosage: 20 Dosage forms Daily; 20tabletsx500mg
     Route: 048
  2. OLMETEC (OLMESARTAN MEDOXOMIL) [Suspect]
     Indication: HYPERTENSION
     Dosage: 14 Dosage forms Daily; 14 tab. x10mg
     Route: 048
  3. SIMVASTATINE TABLET 10MG [Concomitant]
     Dosage: 10 mg
     Route: 048

REACTIONS (4)
  - Renal failure acute [Unknown]
  - Overdose [Unknown]
  - Blood pressure decreased [Unknown]
  - Renal tubular necrosis [Unknown]
